FAERS Safety Report 8766776 (Version 2)
Quarter: 2012Q4

REPORT INFORMATION
  Report Type: 
  Country: US (occurrence: US)
  Receive Date: 20120903
  Receipt Date: 20121011
  Transmission Date: 20130627
  Serious: Yes (Other)
  Sender: FDA-Public Use
  Company Number: US-PFIZER INC-2012215318

PATIENT
  Age: 47 Year
  Sex: Female

DRUGS (1)
  1. ACCUPRIL [Suspect]
     Dosage: 40 (no units provided), once daily

REACTIONS (1)
  - Injury [Unknown]
